FAERS Safety Report 8914160 (Version 1)
Quarter: 2012Q4

REPORT INFORMATION
  Report Type: 
  Country: DE (occurrence: DE)
  Receive Date: 20121119
  Receipt Date: 20121119
  Transmission Date: 20130627
  Serious: Yes (Hospitalization)
  Sender: FDA-Public Use
  Company Number: DE-009507513-1211DEU005086

PATIENT
  Age: 26 Year
  Sex: Female

DRUGS (1)
  1. NUVARING [Suspect]
     Indication: CONTRACEPTION
     Dosage: deliver 0.2mg/0.015 mg daily, q3w
     Route: 067
     Dates: start: 2007

REACTIONS (1)
  - Arrhythmia [Not Recovered/Not Resolved]
